FAERS Safety Report 21047075 (Version 1)
Quarter: 2022Q3

REPORT INFORMATION
  Report Type: Spontaneous
  Country: US (occurrence: None)
  Receive Date: 20220705
  Receipt Date: 20220705
  Transmission Date: 20221026
  Serious: Yes (Other)
  Sender: FDA-Public Use
  Company Number: None

PATIENT
  Age: 41 Year
  Sex: Female

DRUGS (6)
  1. MAVENCLAD [Suspect]
     Active Substance: CLADRIBINE
     Indication: Multiple sclerosis
     Dosage: RX2 2ND CYCLE: TAKE 2 TABLETS BY MOUTH ON DAYS 1-3, THEN TAKE 1 TABLET BY MOUTH ON DAYS 4-5 AT ?INTE
     Dates: start: 20210805
  2. CLADRIBINE [Concomitant]
     Active Substance: CLADRIBINE
  3. ETONOGESTREL MIS ETHY EST [Concomitant]
  4. KEPPRA SOL [Concomitant]
  5. LACOSAMIDE [Concomitant]
     Active Substance: LACOSAMIDE
  6. LEVETIRACETAM [Concomitant]
     Active Substance: LEVETIRACETAM

REACTIONS (2)
  - Cerebrovascular accident [None]
  - Cerebral thrombosis [None]

NARRATIVE: CASE EVENT DATE: 20220320
